FAERS Safety Report 5386547-2 (Version None)
Quarter: 2007Q3

REPORT INFORMATION
  Report Type: 
  Country: None (occurrence: None)
  Receive Date: 20070713
  Receipt Date: 20070711
  Transmission Date: 20080115
  Serious: Yes (Death)
  Sender: FDA-Public Use
  Company Number: NZ-ASTRAZENECA-2007AP04202

PATIENT
  Sex: Female

DRUGS (4)
  1. SEROQUEL [Suspect]
     Route: 048
     Dates: start: 20070517
  2. SEROQUEL [Suspect]
     Dosage: DOSE REDUCED
     Route: 048
     Dates: start: 20070607
  3. PERGOLIDE MESYLATE [Concomitant]
     Dates: start: 20070401
  4. ENTACAPONE [Concomitant]
     Dates: start: 20070412

REACTIONS (1)
  - NEUROLEPTIC MALIGNANT SYNDROME [None]
